FAERS Safety Report 15617635 (Version 3)
Quarter: 2019Q3

REPORT INFORMATION
  Report Type: Spontaneous
  Country: CA (occurrence: CA)
  Receive Date: 20181114
  Receipt Date: 20190924
  Transmission Date: 20191004
  Serious: Yes (Other)
  Sender: FDA-Public Use
  Company Number: CA-AMGEN-CANSP2018158546

PATIENT
  Age: 51 Year
  Sex: Female

DRUGS (13)
  1. EZETIMIBE. [Suspect]
     Active Substance: EZETIMIBE
     Indication: XANTHOMA
  2. PRAVASTATIN [PRAVASTATIN SODIUM] [Suspect]
     Active Substance: PRAVASTATIN
     Indication: TYPE IIA HYPERLIPIDAEMIA
     Dosage: 10 MILLIGRAM
     Route: 065
  3. ROSUVASTATIN. [Suspect]
     Active Substance: ROSUVASTATIN
     Indication: TYPE IIA HYPERLIPIDAEMIA
     Dosage: 10 MG, Q2WK
     Route: 048
  4. ROSUVASTATIN. [Suspect]
     Active Substance: ROSUVASTATIN
     Indication: XANTHOMA
     Dosage: 10 MG, QOD (2 EVERY 2 DAYS)
     Route: 065
  5. LODALIS [Suspect]
     Active Substance: COLESEVELAM HYDROCHLORIDE
     Indication: TYPE IIA HYPERLIPIDAEMIA
     Route: 065
  6. REPATHA [Suspect]
     Active Substance: EVOLOCUMAB
     Indication: TYPE IIA HYPERLIPIDAEMIA
     Dosage: 140 MG, Q2WK
     Route: 058
  7. CHOLESTAGEL [Suspect]
     Active Substance: COLESEVELAM HYDROCHLORIDE
     Indication: TYPE IIA HYPERLIPIDAEMIA
     Dosage: UNK
     Route: 065
  8. PRAVASTATIN [PRAVASTATIN SODIUM] [Suspect]
     Active Substance: PRAVASTATIN
     Indication: XANTHOMA
  9. LODALIS [Suspect]
     Active Substance: COLESEVELAM HYDROCHLORIDE
     Indication: XANTHOMA
  10. ATORVASTATIN CALCIUM. [Suspect]
     Active Substance: ATORVASTATIN CALCIUM
     Indication: TYPE IIA HYPERLIPIDAEMIA
     Dosage: UNK
     Route: 065
  11. EZETIMIBE. [Suspect]
     Active Substance: EZETIMIBE
     Indication: TYPE IIA HYPERLIPIDAEMIA
     Dosage: 10 MILLIGRAM
     Route: 065
  12. REPATHA [Suspect]
     Active Substance: EVOLOCUMAB
     Indication: XANTHOMA
     Dosage: 140 MG, Q2WK
     Route: 058
  13. ATORVASTATIN CALCIUM. [Suspect]
     Active Substance: ATORVASTATIN CALCIUM
     Indication: XANTHOMA

REACTIONS (2)
  - Drug intolerance [Unknown]
  - Drug ineffective [Unknown]
